FAERS Safety Report 13653110 (Version 1)
Quarter: 2017Q2

REPORT INFORMATION
  Report Type: Spontaneous
  Country: US (occurrence: US)
  Receive Date: 20170614
  Receipt Date: 20170614
  Transmission Date: 20170830
  Serious: No
  Sender: FDA-Public Use
  Company Number: US-ROCHE-1388640

PATIENT
  Sex: Female

DRUGS (11)
  1. XELODA [Suspect]
     Active Substance: CAPECITABINE
     Indication: BREAST CANCER
     Route: 048
     Dates: start: 20131101
  2. ESCITALOPRAM [Concomitant]
     Active Substance: ESCITALOPRAM OXALATE
  3. PREDNISONE. [Concomitant]
     Active Substance: PREDNISONE
  4. OXYBUTYNIN [Concomitant]
     Active Substance: OXYBUTYNIN
  5. CARVEDILOL. [Concomitant]
     Active Substance: CARVEDILOL
  6. BACTRIM [Concomitant]
     Active Substance: SULFAMETHOXAZOLE\TRIMETHOPRIM
  7. ZOMETA [Concomitant]
     Active Substance: ZOLEDRONIC ACID
  8. XGEVA [Concomitant]
     Active Substance: DENOSUMAB
  9. IMODIUM [Concomitant]
     Active Substance: LOPERAMIDE HYDROCHLORIDE
  10. CLONAZEPAM. [Concomitant]
     Active Substance: CLONAZEPAM
  11. XELODA [Suspect]
     Active Substance: CAPECITABINE
     Indication: BONE CANCER

REACTIONS (5)
  - Pyrexia [Recovered/Resolved]
  - Insomnia [Unknown]
  - Chills [Recovered/Resolved]
  - Fatigue [Unknown]
  - Diarrhoea [Unknown]
